FAERS Safety Report 5026463-9 (Version None)
Quarter: 2006Q2

REPORT INFORMATION
  Report Type: 
  Country: None (occurrence: None)
  Receive Date: 20060426
  Receipt Date: 20060122
  Transmission Date: 20061013
  Serious: Yes (Other)
  Sender: FDA-Public Use
  Company Number: 2006011795

PATIENT
  Age: 68 Year
  Sex: Female
  Weight: 56.246 kg

DRUGS (2)
  1. LYRICA [Suspect]
     Indication: NERVE COMPRESSION
     Dosage: 50 MG (50 MG, 1 IN 1 D), ORAL
     Route: 048
     Dates: start: 20060105, end: 20060109
  2. DIOVAN [Concomitant]

REACTIONS (1)
  - SWELLING FACE [None]
